FAERS Safety Report 23134064 (Version 2)
Quarter: 2024Q1

REPORT INFORMATION
  Report Type: Spontaneous
  Country: US (occurrence: None)
  Receive Date: 20231101
  Receipt Date: 20240304
  Transmission Date: 20240409
  Serious: No
  Sender: FDA-Public Use
  Company Number: 2023A245484

PATIENT
  Age: 78 Year
  Sex: Male

DRUGS (1)
  1. BYETTA [Suspect]
     Active Substance: EXENATIDE
     Indication: Diabetes mellitus
     Dosage: 250 MCG/2.4 ML 10.0UG UNKNOWN
     Dates: start: 202307

REACTIONS (5)
  - Nausea [Unknown]
  - Incorrect dose administered by device [Unknown]
  - Drug dose omission by device [Unknown]
  - Intentional device misuse [Unknown]
  - Device delivery system issue [Unknown]
